FAERS Safety Report 4328409-5 (Version None)
Quarter: 2004Q1

REPORT INFORMATION
  Report Type: 
  Country: None (occurrence: None)
  Receive Date: 20040325
  Receipt Date: 20040826
  Transmission Date: 20041129
  Serious: No
  Sender: FDA-Public Use
  Company Number: TAP2003Q02000

PATIENT
  Age: 81 Year
  Sex: Male
  Weight: 77.1115 kg

DRUGS (4)
  1. LUPRON DEPOT [Suspect]
     Indication: PROSTATE CANCER
     Dosage: 7.5 MG, 1 IN 1 M, INTRAMUSCULAR
     Route: 030
     Dates: start: 20020901, end: 20020901
  2. LUPRON DEPOT-3 [Suspect]
     Indication: PROSTATE CANCER
     Dosage: 22.5 MG, 1 IN 3 M, INTRAMUSCULAR
     Route: 030
     Dates: start: 20021001, end: 20021001
  3. CLONIDINE [Concomitant]
  4. SYNTHROID [Concomitant]

REACTIONS (5)
  - BENIGN BREAST NEOPLASM [None]
  - DIARRHOEA [None]
  - FATIGUE [None]
  - HOT FLUSH [None]
  - WEIGHT INCREASED [None]
